FAERS Safety Report 8276872-X (Version None)
Quarter: 2012Q2

REPORT INFORMATION
  Report Type: 
  Country: None (occurrence: None)
  Receive Date: 20120412
  Receipt Date: 20120406
  Transmission Date: 20120825
  Serious: Yes (Death, Hospitalization)
  Sender: FDA-Public Use
  Company Number: US-ACTELION-A-NJ2011-57882

PATIENT

DRUGS (3)
  1. VENTAVIS [Suspect]
     Indication: PULMONARY ARTERIAL HYPERTENSION
     Dosage: UNK
     Route: 055
  2. REVATIO [Concomitant]
  3. VENTAVIS [Suspect]
     Dosage: UNK
     Route: 055
     Dates: start: 20100722, end: 20111101

REACTIONS (3)
  - DEATH [None]
  - NO THERAPEUTIC RESPONSE [None]
  - PLEURAL EFFUSION [None]
